FAERS Safety Report 16022726 (Version 1)
Quarter: 2019Q1

REPORT INFORMATION
  Report Type: Spontaneous
  Country: GB (occurrence: GB)
  Receive Date: 20190301
  Receipt Date: 20190301
  Transmission Date: 20190418
  Serious: Yes (Hospitalization)
  Sender: FDA-Public Use
  Company Number: GB-PFIZER INC-2019088587

PATIENT
  Age: 33 Year

DRUGS (15)
  1. PROMETHAZINE HYDROCHLORIDE. [Concomitant]
     Active Substance: PROMETHAZINE HYDROCHLORIDE
     Dosage: 50 MG, 1X/DAY
  2. MIRTAZAPINE. [Concomitant]
     Active Substance: MIRTAZAPINE
     Dosage: 15 MG, 1X/DAY (AT NIGHT)
  3. PROCYCLIDINE [Concomitant]
     Active Substance: PROCYCLIDINE
     Dosage: 10 MG, 1X/DAY
  4. FERROUS FUMARATE [Concomitant]
     Active Substance: FERROUS FUMARATE
     Dosage: 630 MG, 1X/DAY
  5. LORAZEPAM. [Concomitant]
     Active Substance: LORAZEPAM
     Dosage: 1 MG, AS NEEDED
  6. EPIPEN [Concomitant]
     Active Substance: EPINEPHRINE
     Dosage: UNK UNK, AS NEEDED (AUTO-INJECTORS)
  7. VENLAFAXINE HCL [Suspect]
     Active Substance: VENLAFAXINE HYDROCHLORIDE
     Dosage: 150 MG, 1X/DAY
  8. METFORMIN [Concomitant]
     Active Substance: METFORMIN HYDROCHLORIDE
     Dosage: 1000 MG, 1X/DAY
  9. LACTULOSE. [Concomitant]
     Active Substance: LACTULOSE
     Dosage: UNK UNK, AS NEEDED (3.1 - 3.7G/5ML THREE 5ML SPOONFULS TO BE TAKEN TWICE A DAY)
  10. OMEPRAZOLE. [Concomitant]
     Active Substance: OMEPRAZOLE
     Dosage: 40 MG, 1X/DAY
  11. THIAMINE. [Concomitant]
     Active Substance: THIAMINE
     Dosage: 300 MG, 1X/DAY
  12. PRIADEL [LITHIUM CITRATE] [Concomitant]
     Dosage: 800 MG, 1X/DAY
  13. QUETIAPINE. [Suspect]
     Active Substance: QUETIAPINE
     Dosage: 650 MG, 1X/DAY (300MG TABLET 1 EACH NIGHT, 50MG TABLET: 1 IN THE MORNING, 3 AT LUNCH TIME, 3 AT NIGH
  14. HYOSCINE BUTYLBROMIDE [Concomitant]
     Active Substance: BUTYLSCOPOLAMINE
     Dosage: 60 MG, 1X/DAY
  15. ZOLPIDEM [Concomitant]
     Active Substance: ZOLPIDEM\ZOLPIDEM TARTRATE
     Dosage: 10 MG, 1X/DAY (AT NIGHT)

REACTIONS (1)
  - Pulmonary embolism [Unknown]
